FAERS Safety Report 9867987 (Version 2)
Quarter: 2014Q1

REPORT INFORMATION
  Report Type: Spontaneous
  Country: ES (occurrence: ES)
  Receive Date: 20140204
  Receipt Date: 20140204
  Transmission Date: 20141002
  Serious: Yes (Hospitalization)
  Sender: FDA-Public Use
  Company Number: ES-BRISTOL-MYERS SQUIBB COMPANY-19909936

PATIENT
  Age: 83 Year
  Sex: Female

DRUGS (6)
  1. SPRYCEL [Suspect]
     Indication: CHRONIC MYELOID LEUKAEMIA
     Dosage: RESTARTED AT A DOSE OF 40 MG/DAY.
     Route: 048
     Dates: start: 200406
  2. OMEPRAZOLE [Concomitant]
  3. ENALAPRIL [Concomitant]
  4. SIMVASTATINE [Concomitant]
  5. DOXAZOSIN [Concomitant]
  6. LANTUS [Concomitant]

REACTIONS (4)
  - Angioedema [Recovered/Resolved]
  - Pleural effusion [Recovered/Resolved]
  - Hypersensitivity [Unknown]
  - Uvulitis [Unknown]
